FAERS Safety Report 7637348-3 (Version None)
Quarter: 2011Q3

REPORT INFORMATION
  Report Type: 
  Country: None (occurrence: None)
  Receive Date: 20110726
  Receipt Date: 20110724
  Transmission Date: 20111222
  Serious: No
  Sender: FDA-Public Use
  Company Number: US-PFIZER INC-2011167951

PATIENT
  Sex: Male

DRUGS (1)
  1. ADVIL LIQUI-GELS [Suspect]
     Dosage: UNK

REACTIONS (3)
  - GLOSSODYNIA [None]
  - WRONG TECHNIQUE IN DRUG USAGE PROCESS [None]
  - BURNING SENSATION [None]
